FAERS Safety Report 19290007 (Version 1)
Quarter: 2021Q2

REPORT INFORMATION
  Report Type: Report from Study
  Country: CO (occurrence: CO)
  Receive Date: 20210522
  Receipt Date: 20210522
  Transmission Date: 20210717
  Serious: Yes (Other)
  Sender: FDA-Public Use
  Company Number: NVSC2021CO064778

PATIENT
  Sex: Female

DRUGS (1)
  1. REVOLADE [Suspect]
     Active Substance: ELTROMBOPAG OLAMINE
     Indication: IMMUNE THROMBOCYTOPENIA
     Dosage: UNK
     Route: 048

REACTIONS (5)
  - Cataract [Unknown]
  - Feeling abnormal [Unknown]
  - Pyrexia [Unknown]
  - Platelet count decreased [Unknown]
  - COVID-19 [Unknown]
